FAERS Safety Report 20478320 (Version 2)
Quarter: 2022Q1

REPORT INFORMATION
  Report Type: Spontaneous
  Country: JP (occurrence: JP)
  Receive Date: 20220216
  Receipt Date: 20220316
  Transmission Date: 20220423
  Serious: Yes (Hospitalization, Other)
  Sender: FDA-Public Use
  Company Number: JP-CHUGAI-2021024900AA

PATIENT
  Age: 73 Year
  Sex: Male

DRUGS (2)
  1. GAZYVA [Suspect]
     Active Substance: OBINUTUZUMAB
     Indication: Follicular lymphoma
     Route: 041
  2. BENDAMUSTINE HYDROCHLORIDE [Suspect]
     Active Substance: BENDAMUSTINE HYDROCHLORIDE
     Indication: Product used for unknown indication
     Route: 041

REACTIONS (5)
  - Lymphocyte count decreased [Unknown]
  - Platelet count decreased [Recovering/Resolving]
  - Blood lactate dehydrogenase increased [Unknown]
  - Varicella zoster virus infection [Unknown]
  - Herpes zoster [Unknown]
